FAERS Safety Report 7056445-7 (Version None)
Quarter: 2010Q4

REPORT INFORMATION
  Report Type: 
  Country: None (occurrence: None)
  Receive Date: 20101021
  Receipt Date: 20101013
  Transmission Date: 20110411
  Serious: Yes (Other)
  Sender: FDA-Public Use
  Company Number: BR-PFIZER INC-2010130010

PATIENT
  Age: 53 Year
  Sex: Female
  Weight: 80 kg

DRUGS (3)
  1. GEODON [Suspect]
     Indication: MANIA
     Dosage: 40 MG, 2X/DAY
     Route: 048
     Dates: start: 20101008
  2. RIVOTRIL [Concomitant]
     Indication: RELAXATION THERAPY
     Dosage: UNK
  3. NEURAL [Concomitant]
     Indication: DEPRESSION
     Dosage: UNK

REACTIONS (2)
  - DECREASED APPETITE [None]
  - PERSECUTORY DELUSION [None]
